FAERS Safety Report 12501748 (Version 7)
Quarter: 2025Q1

REPORT INFORMATION
  Report Type: Spontaneous
  Country: JP (occurrence: JP)
  Receive Date: 20160627
  Receipt Date: 20250125
  Transmission Date: 20250408
  Serious: Yes (Hospitalization, Other)
  Sender: UNITED THERAPEUTICS
  Company Number: JP-UNITED THERAPEUTICS-UNT-2016-003452

PATIENT
  Sex: Female
  Weight: 59 kg

DRUGS (9)
  1. REMODULIN [Suspect]
     Active Substance: TREPROSTINIL
     Indication: Pulmonary arterial hypertension
     Route: 041
  2. REMODULIN [Suspect]
     Active Substance: TREPROSTINIL
     Route: 041
  3. REMODULIN [Suspect]
     Active Substance: TREPROSTINIL
     Route: 041
     Dates: start: 20151126, end: 20160615
  4. ADCIRCA [Concomitant]
     Active Substance: TADALAFIL
     Indication: Pulmonary arterial hypertension
  5. OPSUMIT [Concomitant]
     Active Substance: MACITENTAN
     Indication: Pulmonary arterial hypertension
     Dosage: 10 MG, QD
     Dates: start: 20151029
  6. FUROSEMIDE [Concomitant]
     Active Substance: FUROSEMIDE
     Indication: Pulmonary arterial hypertension
     Dosage: 10 MG, QD
  7. SPIRONOLACTONE [Concomitant]
     Active Substance: SPIRONOLACTONE
     Indication: Pulmonary arterial hypertension
     Dosage: 50 MG, QD
  8. ADEMPAS [Concomitant]
     Active Substance: RIOCIGUAT
     Indication: Pulmonary arterial hypertension
     Dosage: 3 MG, Q8H
     Dates: start: 20160218
  9. ADEMPAS [Concomitant]
     Active Substance: RIOCIGUAT
     Dosage: 7.5 MG, QD

REACTIONS (10)
  - Hyperthyroidism [Recovering/Resolving]
  - Cardiac failure [Unknown]
  - Device related infection [Unknown]
  - Therapeutic response decreased [Unknown]
  - Catheter site dermatitis [Recovered/Resolved]
  - Tremor [Unknown]
  - Hyperhidrosis [Unknown]
  - Dyspnoea [Not Recovered/Not Resolved]
  - Respiratory tract congestion [Unknown]
  - Goitre [Unknown]

NARRATIVE: CASE EVENT DATE: 20160101
